FAERS Safety Report 9253944 (Version 1)
Quarter: 2013Q2

REPORT INFORMATION
  Report Type: Spontaneous
  Country: US (occurrence: None)
  Receive Date: 20130422
  Receipt Date: 20130422
  Transmission Date: 20140414
  Serious: Yes (Disabling)
  Sender: FDA-Public Use
  Company Number: None

PATIENT
  Age: 56 Year
  Sex: Male
  Weight: 74.39 kg

DRUGS (3)
  1. LEXAPRO [Suspect]
     Indication: ANXIETY
     Dosage: 20 MG.  ONCE DAILY  PO
     Route: 048
     Dates: start: 20100801, end: 20120115
  2. LEXAPRO [Suspect]
     Indication: DEPRESSION
     Dosage: 20 MG.  ONCE DAILY  PO
     Route: 048
     Dates: start: 20100801, end: 20120115
  3. LEXAPRO [Suspect]
     Indication: PANIC DISORDER
     Dosage: 20 MG.  ONCE DAILY  PO
     Route: 048
     Dates: start: 20100801, end: 20120115

REACTIONS (1)
  - Parkinsonism [None]
